FAERS Safety Report 23187414 (Version 1)
Quarter: 2023Q4

REPORT INFORMATION
  Report Type: Spontaneous
  Country: JP (occurrence: None)
  Receive Date: 20231115
  Receipt Date: 20231115
  Transmission Date: 20240110
  Serious: Yes (Hospitalization)
  Sender: FDA-Public Use
  Company Number: 2021A691801

PATIENT
  Age: 65 Year
  Sex: Male
  Weight: 87 kg

DRUGS (3)
  1. LYNPARZA [Suspect]
     Active Substance: OLAPARIB
     Indication: Prostate cancer
     Route: 048
     Dates: start: 20210509, end: 20210809
  2. LYNPARZA [Suspect]
     Active Substance: OLAPARIB
     Indication: Prostate cancer
     Route: 048
     Dates: start: 2021, end: 2021
  3. LYNPARZA [Suspect]
     Active Substance: OLAPARIB
     Indication: Prostate cancer
     Dosage: NUMBER OF SEPARATE DOSAGES UNKNOWN500.0MG UNKNOWN
     Route: 048
     Dates: start: 2021

REACTIONS (3)
  - Anaemia [Recovering/Resolving]
  - Decreased appetite [Recovered/Resolved]
  - Cerebral infarction [Unknown]

NARRATIVE: CASE EVENT DATE: 20210101
